FAERS Safety Report 9646280 (Version 1)
Quarter: 2013Q4

REPORT INFORMATION
  Report Type: Spontaneous
  Country: FR (occurrence: None)
  Receive Date: 20131024
  Receipt Date: 20131024
  Transmission Date: 20140711
  Serious: Yes (Hospitalization)
  Sender: FDA-Public Use
  Company Number: 2013000290

PATIENT
  Age: 73 Year
  Sex: Female

DRUGS (7)
  1. ACEON (PERINDOPRIL ERBUMINE) TABLET [Suspect]
     Indication: HYPERTENSION
     Route: 048
     Dates: end: 20130807
  2. SECTRAL (ACEBUTOLOL HYDROCHLORIDE) [Suspect]
     Indication: HYPERTENSION
     Route: 048
     Dates: start: 2012, end: 20130807
  3. ALDACTONE A (SPIRONOLACTONE) [Suspect]
     Indication: HYPERTENSION
     Route: 048
     Dates: end: 20130807
  4. AMLODIPINE (AMLODIPINE) [Suspect]
     Indication: HYPERTENSION
     Route: 048
     Dates: end: 20130807
  5. INEXIUM (ESOMEPRAZOLE MAGNESIUM) [Concomitant]
  6. PROZAC (FLUOXETINE HYDROCHLORIDE) [Concomitant]
  7. PREVISCAN [Concomitant]

REACTIONS (2)
  - Diarrhoea [None]
  - Sinus bradycardia [None]
